FAERS Safety Report 8557862-6 (Version None)
Quarter: 2012Q3

REPORT INFORMATION
  Report Type: 
  Country: None (occurrence: None)
  Receive Date: 20120801
  Receipt Date: 20120725
  Transmission Date: 20120928
  Serious: Yes (Life-Threatening)
  Sender: FDA-Public Use
  Company Number: JP-GLAXOSMITHKLINE-B0811415A

PATIENT
  Sex: Female

DRUGS (3)
  1. FLOLAN [Suspect]
     Indication: PRODUCT USED FOR UNKNOWN INDICATION
     Route: 042
     Dates: start: 20101111
  2. VOLIBRIS [Concomitant]
     Dosage: 7.5MG PER DAY
     Route: 048
     Dates: start: 20110101, end: 20120601
  3. REVATIO [Concomitant]
     Dosage: 60MG PER DAY
     Route: 048
     Dates: start: 20120201, end: 20120601

REACTIONS (15)
  - PYREXIA [None]
  - DECREASED APPETITE [None]
  - SWELLING [None]
  - LYMPHADENOPATHY [None]
  - SPLENOMEGALY [None]
  - CHEST X-RAY ABNORMAL [None]
  - GALLBLADDER DISORDER [None]
  - HEPATITIS CHRONIC ACTIVE [None]
  - LIVER DISORDER [None]
  - ABDOMINAL PAIN UPPER [None]
  - ABDOMINAL PAIN [None]
  - PULMONARY ARTERY DILATATION [None]
  - HEPATOMEGALY [None]
  - CHOLANGITIS [None]
  - ASCITES [None]
